FAERS Safety Report 9793023 (Version 2)
Quarter: 2014Q2

REPORT INFORMATION
  Report Type: Spontaneous
  Country: FR (occurrence: FR)
  Receive Date: 20140102
  Receipt Date: 20140418
  Transmission Date: 20141212
  Serious: Yes (Other)
  Sender: FDA-Public Use
  Company Number: FR-PFIZER INC-2013369801

PATIENT
  Age: 54 Year
  Sex: Female
  Weight: 49 kg

DRUGS (15)
  1. TRIFLUCAN [Suspect]
     Indication: PSEUDOMONAS INFECTION
     Dosage: UNK
     Route: 048
     Dates: start: 20131117, end: 20131120
  2. CEFTAZIDIME [Suspect]
     Indication: PSEUDOMONAS INFECTION
     Dosage: 3 G, 3X/DAY
     Route: 042
     Dates: start: 20131117, end: 20131130
  3. NEBCINE [Concomitant]
     Indication: PSEUDOMONAS INFECTION
     Dosage: 450 MG, DAILY
     Dates: start: 20131117
  4. AZITHROMYCIN [Concomitant]
  5. ANDROCUR [Concomitant]
  6. ESTROPATCH [Concomitant]
  7. CETIRIZINE [Concomitant]
  8. BUSPIRONE [Concomitant]
  9. SEROPLEX [Concomitant]
  10. ATACAND [Concomitant]
  11. AMLOR [Concomitant]
  12. OROCAL [Concomitant]
  13. UVEDOSE [Concomitant]
  14. FUMAFER [Concomitant]
  15. VITAMIN A [Concomitant]

REACTIONS (2)
  - Hepatocellular injury [Recovering/Resolving]
  - Cholelithiasis [Not Recovered/Not Resolved]
